FAERS Safety Report 7728630-X (Version None)
Quarter: 2011Q3

REPORT INFORMATION
  Report Type: 
  Country: None (occurrence: None)
  Receive Date: 20110831
  Receipt Date: 20110831
  Transmission Date: 20111222
  Serious: Yes (Other)
  Sender: FDA-Public Use
  Company Number: None

PATIENT

DRUGS (1)
  1. THYROID TAB [Suspect]
     Dosage: 90 MGS DAILY

REACTIONS (5)
  - THYROID FUNCTION TEST ABNORMAL [None]
  - PRODUCT COMPOUNDING QUALITY ISSUE [None]
  - LOSS OF CONSCIOUSNESS [None]
  - ALOPECIA [None]
  - DRUG INEFFECTIVE [None]
